FAERS Safety Report 7817637-X (Version None)
Quarter: 2011Q4

REPORT INFORMATION
  Report Type: 
  Country: None (occurrence: None)
  Receive Date: 20111017
  Receipt Date: 20111011
  Transmission Date: 20120403
  Serious: Yes (Hospitalization)
  Sender: FDA-Public Use
  Company Number: FR-KINGPHARMUSA00001-K201101207

PATIENT
  Age: 70 Year
  Sex: Female

DRUGS (5)
  1. HYDROCHLOROTHIAZIDE [Suspect]
     Dosage: 12.5 MG, QD
     Route: 048
     Dates: start: 20110101
  2. MINERAL TAB [Suspect]
     Indication: MACULAR DEGENERATION
     Dosage: UNK
     Route: 048
     Dates: start: 20110701, end: 20110927
  3. HYDROCHLOROTHIAZIDE [Suspect]
     Dosage: 12.5 MG, QD
     Route: 048
     Dates: start: 20080623, end: 20110926
  4. ALTACE [Suspect]
     Dosage: 2.5 MG, QD
     Route: 048
     Dates: start: 20110101
  5. ALTACE [Suspect]
     Dosage: 2.5 MG, QD
     Route: 048
     Dates: start: 20080623, end: 20110926

REACTIONS (1)
  - ATRIAL FIBRILLATION [None]
